FAERS Safety Report 17856079 (Version 6)
Quarter: 2020Q3

REPORT INFORMATION
  Report Type: Report from Study
  Country: US (occurrence: US)
  Receive Date: 20200603
  Receipt Date: 20200919
  Transmission Date: 20201103
  Serious: Yes (Disabling, Other)
  Sender: FDA-Public Use
  Company Number: NVSC2020US154127

PATIENT
  Age: 67 Year
  Sex: Male

DRUGS (1)
  1. ENTRESTO [Suspect]
     Active Substance: SACUBITRIL\VALSARTAN
     Dosage: 200 MG, BID (1 FULL STRENGTH TAB OF THE 97/103 MG RATHER THAN 2 49/51 MG)
     Route: 048
     Dates: start: 201912

REACTIONS (17)
  - Blood pressure abnormal [Unknown]
  - Oliguria [Recovered/Resolved]
  - Somnolence [Unknown]
  - Nausea [Unknown]
  - Ejection fraction abnormal [Unknown]
  - Taste disorder [Unknown]
  - Gastric disorder [Unknown]
  - Tissue injury [Unknown]
  - Ill-defined disorder [Unknown]
  - Erection increased [Unknown]
  - Asthenia [Unknown]
  - Hiccups [Unknown]
  - Fall [Unknown]
  - Contrast media allergy [Unknown]
  - Mobility decreased [Unknown]
  - Suicidal ideation [Unknown]
  - Depression [Unknown]

NARRATIVE: CASE EVENT DATE: 202005
